FAERS Safety Report 4873752-4 (Version None)
Quarter: 2006Q1

REPORT INFORMATION
  Report Type: 
  Country: None (occurrence: None)
  Receive Date: 20060104
  Receipt Date: 20051221
  Transmission Date: 20060701
  Serious: Yes (Hospitalization)
  Sender: FDA-Public Use
  Company Number: US-2005-025040

PATIENT
  Age: 30 Year
  Sex: Female
  Weight: 47.9906 kg

DRUGS (2)
  1. BETASERON [Suspect]
     Indication: RELAPSING-REMITTING MULTIPLE SCLEROSIS
     Dosage: DOSE TITRATION TO 8 MIU EVERY 2 D SUBCUTANEOUS
     Route: 058
     Dates: start: 20050801, end: 20051104
  2. APRI [Concomitant]

REACTIONS (1)
  - ATRIAL FIBRILLATION [None]
